FAERS Safety Report 14150943 (Version 1)
Quarter: 2017Q4

REPORT INFORMATION
  Report Type: Spontaneous
  Country: CN (occurrence: CN)
  Receive Date: 20171102
  Receipt Date: 20171102
  Transmission Date: 20180321
  Serious: Yes (Hospitalization)
  Sender: FDA-Public Use
  Company Number: CN-ROCHE-2017230

PATIENT
  Age: 28 Year
  Sex: Female
  Weight: 45 kg

DRUGS (2)
  1. ROCEPHIN [Suspect]
     Active Substance: CEFTRIAXONE SODIUM
     Indication: CENTRAL NERVOUS SYSTEM INFECTION
     Route: 041
     Dates: start: 20170914, end: 20170922
  2. NACL .9% [Concomitant]
     Route: 041

REACTIONS (1)
  - Hepatic function abnormal [Recovering/Resolving]

NARRATIVE: CASE EVENT DATE: 20170922
